FAERS Safety Report 7424794-6 (Version None)
Quarter: 2011Q2

REPORT INFORMATION
  Report Type: 
  Country: None (occurrence: None)
  Receive Date: 20110419
  Receipt Date: 20110214
  Transmission Date: 20111010
  Serious: No
  Sender: FDA-Public Use
  Company Number: US-ABBOTT-11P-163-0706347-00

PATIENT
  Sex: Female
  Weight: 43 kg

DRUGS (3)
  1. LUPRON DEPOT-PED [Suspect]
     Indication: PRECOCIOUS PUBERTY
     Dates: start: 20101109
  2. LUPRON DEPOT-PED [Suspect]
     Dates: start: 20110126
  3. UNKNOWN GROWTH HORMONES [Concomitant]
     Indication: PRODUCT USED FOR UNKNOWN INDICATION

REACTIONS (4)
  - VAGINAL HAEMORRHAGE [None]
  - INCORRECT DOSE ADMINISTERED [None]
  - METRORRHAGIA [None]
  - DRUG DISPENSING ERROR [None]
